FAERS Safety Report 5127717-8 (Version None)
Quarter: 2006Q4

REPORT INFORMATION
  Report Type: 
  Country: None (occurrence: None)
  Receive Date: 20061016
  Receipt Date: 20060921
  Transmission Date: 20070319
  Serious: Yes (Life-Threatening, Hospitalization)
  Sender: FDA-Public Use
  Company Number: JP-JPN-A200603800

PATIENT
  Age: 77 Year
  Sex: Male
  Weight: 59 kg

DRUGS (9)
  1. VALTREX [Suspect]
     Indication: HERPES ZOSTER
     Dosage: 1000MG THREE TIMES PER DAY
     Route: 048
     Dates: start: 20060918, end: 20060920
  2. NORVASC [Concomitant]
     Indication: HYPERTENSION
     Route: 048
  3. MEVALOTIN [Concomitant]
     Indication: HYPERLIPIDAEMIA
     Route: 048
  4. ISOSORBIDE MONONITRATE [Concomitant]
     Indication: ANGINA PECTORIS
     Route: 048
  5. MAGMITT [Concomitant]
     Indication: CONSTIPATION
     Route: 048
  6. TINELAC [Concomitant]
     Indication: CONSTIPATION
     Route: 048
  7. BEPRICOR [Concomitant]
     Indication: ANGINA PECTORIS
     Route: 048
  8. ASPIRIN [Concomitant]
     Indication: ANGINA PECTORIS
     Route: 048
  9. PANALDINE [Concomitant]
     Indication: ANGINA PECTORIS
     Route: 048

REACTIONS (4)
  - BLOOD CREATININE INCREASED [None]
  - DIZZINESS [None]
  - FEELING ABNORMAL [None]
  - RENAL FAILURE ACUTE [None]
